FAERS Safety Report 12763962 (Version 1)
Quarter: 2016Q3

REPORT INFORMATION
  Report Type: Spontaneous
  Country: US (occurrence: US)
  Receive Date: 20160920
  Receipt Date: 20160920
  Transmission Date: 20161109
  Serious: No
  Sender: FDA-Public Use
  Company Number: US-LPDUSPRD-20160179

PATIENT

DRUGS (1)
  1. ACETYLCYSTEINE SOLUTION, USP (014-10) [Suspect]
     Active Substance: ACETYLCYSTEINE
     Dosage: UNKNOWN; MIXED IN 500 MG DSW
     Route: 042

REACTIONS (2)
  - No adverse event [Recovered/Resolved]
  - Incorrect route of drug administration [Recovered/Resolved]
